FAERS Safety Report 9466582 (Version 2)
Quarter: 2013Q3

REPORT INFORMATION
  Report Type: Spontaneous
  Country: JP (occurrence: JP)
  Receive Date: 20130820
  Receipt Date: 20130829
  Transmission Date: 20140515
  Serious: Yes (Other)
  Sender: FDA-Public Use
  Company Number: JP-JNJFOC-20130809043

PATIENT
  Sex: Male
  Weight: 48 kg

DRUGS (10)
  1. RISPERIDONE [Suspect]
     Indication: SCHIZOPHRENIA
     Route: 048
  2. RISPERIDONE [Suspect]
     Indication: SCHIZOPHRENIA
     Route: 048
  3. RISPERIDONE [Suspect]
     Indication: SCHIZOPHRENIA
     Route: 048
  4. RISPERIDONE [Suspect]
     Indication: SCHIZOPHRENIA
     Route: 048
  5. SEPAZON [Concomitant]
     Route: 048
  6. TASMOLIN [Concomitant]
     Route: 048
  7. LENDEM [Concomitant]
     Route: 048
  8. KONSUBEN [Concomitant]
     Route: 048
  9. MAGMITT [Concomitant]
     Route: 048
  10. BENZALIN [Concomitant]
     Route: 048

REACTIONS (5)
  - Loss of consciousness [Unknown]
  - Oculogyric crisis [Unknown]
  - Dyspnoea [Unknown]
  - Weight decreased [Unknown]
  - Schizophrenia [Unknown]
